FAERS Safety Report 7729739-7 (Version None)
Quarter: 2011Q3

REPORT INFORMATION
  Report Type: 
  Country: None (occurrence: None)
  Receive Date: 20110906
  Receipt Date: 20110825
  Transmission Date: 20111222
  Serious: Yes (Hospitalization)
  Sender: FDA-Public Use
  Company Number: DE-ROCHE-732256

PATIENT
  Sex: Female
  Weight: 68 kg

DRUGS (2)
  1. BEVACIZUMAB [Suspect]
     Dosage: 6TH CYCLE WAS STARTED ON 18 AUG 2010
     Route: 042
  2. TAXOTERE [Suspect]
     Dosage: ONE APPLICATION ON 18 AUG 2010
     Route: 042

REACTIONS (1)
  - PLEURAL EFFUSION [None]
